FAERS Safety Report 13899502 (Version 2)
Quarter: 2017Q4

REPORT INFORMATION
  Report Type: Spontaneous
  Country: US (occurrence: US)
  Receive Date: 20170823
  Receipt Date: 20171117
  Transmission Date: 20180320
  Serious: No
  Sender: FDA-Public Use
  Company Number: US-JAZZ-2017-US-008529

PATIENT
  Sex: Female

DRUGS (10)
  1. MELATONIN [Concomitant]
     Active Substance: MELATONIN
  2. AMBIEN [Concomitant]
     Active Substance: ZOLPIDEM TARTRATE
  3. ADVIL (MEFENAMIC ACID) [Concomitant]
     Active Substance: MEFENAMIC ACID
  4. VITAMIN B12 [Concomitant]
     Active Substance: CYANOCOBALAMIN
  5. XYREM [Suspect]
     Active Substance: SODIUM OXYBATE
     Indication: CATAPLEXY
     Dosage: DOSE ADJUSTMENTS
     Route: 048
     Dates: start: 201612, end: 201702
  6. NUVIGIL [Concomitant]
     Active Substance: ARMODAFINIL
  7. XYREM [Suspect]
     Active Substance: SODIUM OXYBATE
     Dosage: 3G, BID
     Route: 048
     Dates: start: 201702, end: 201704
  8. EMERGEN C [Concomitant]
     Active Substance: MINERALS\VITAMINS
  9. ADDERALL [Concomitant]
     Active Substance: AMPHETAMINE ASPARTATE\AMPHETAMINE SULFATE\DEXTROAMPHETAMINE SACCHARATE\DEXTROAMPHETAMINE SULFATE
  10. XYREM [Suspect]
     Active Substance: SODIUM OXYBATE
     Indication: NARCOLEPSY
     Dosage: 2.25G, BID
     Route: 048
     Dates: start: 201611, end: 201612

REACTIONS (1)
  - Raynaud^s phenomenon [Recovering/Resolving]
